FAERS Safety Report 9332573 (Version 1)
Quarter: 2013Q2

REPORT INFORMATION
  Report Type: Spontaneous
  Country: IE (occurrence: IE)
  Receive Date: 20130606
  Receipt Date: 20130606
  Transmission Date: 20140414
  Serious: Yes (Hospitalization, Other)
  Sender: FDA-Public Use
  Company Number: IE-JNJFOC-20130519838

PATIENT
  Age: 4 Year
  Sex: Female

DRUGS (4)
  1. REMICADE [Suspect]
     Indication: CROHN^S DISEASE
     Dosage: 267 ML INFUSED OVER 2 HOURS AND 14 MINUTES
     Route: 042
     Dates: start: 20130104
  2. REMICADE [Suspect]
     Indication: CROHN^S DISEASE
     Dosage: 267 ML INFUSED OVER 2 HOURS AND 14 MINUTES
     Route: 042
     Dates: start: 20130118
  3. REMICADE [Suspect]
     Indication: CROHN^S DISEASE
     Dosage: 267 ML INFUSED OVER 2 HOURS AND 14 MINUTES.
     Route: 042
     Dates: start: 20130215, end: 20130215
  4. 6 MERCAPTOPURINE [Concomitant]
     Indication: CROHN^S DISEASE
     Route: 048
     Dates: start: 20130104

REACTIONS (3)
  - Flushing [Recovered/Resolved]
  - Vomiting [Recovered/Resolved]
  - Infusion related reaction [Recovered/Resolved]
